FAERS Safety Report 15235609 (Version 1)
Quarter: 2018Q3

REPORT INFORMATION
  Report Type: Spontaneous
  Country: PR (occurrence: PR)
  Receive Date: 20180803
  Receipt Date: 20180803
  Transmission Date: 20181010
  Serious: Yes (Other)
  Sender: FDA-Public Use
  Company Number: PR-SUN PHARMACEUTICAL INDUSTRIES LTD-2018R1-180442

PATIENT
  Age: 66 Year
  Sex: Female

DRUGS (5)
  1. METHIMAZOLE. [Suspect]
     Active Substance: METHIMAZOLE
     Dosage: {5 MG DAILY
     Route: 065
  2. L?T4 [Concomitant]
     Dosage: 1.6 MCG/KG/DAY
     Route: 065
  3. L?T4 [Concomitant]
     Indication: BLOOD THYROID STIMULATING HORMONE ABNORMAL
     Dosage: UNK
     Route: 065
  4. L?T4 [Concomitant]
     Dosage: LOW DOSE
     Route: 065
  5. METHIMAZOLE. [Suspect]
     Active Substance: METHIMAZOLE
     Indication: BLOOD THYROID STIMULATING HORMONE ABNORMAL
     Dosage: UNK
     Route: 065

REACTIONS (1)
  - Therapeutic response decreased [Unknown]
